FAERS Safety Report 7477126-1 (Version None)
Quarter: 2011Q2

REPORT INFORMATION
  Report Type: 
  Country: None (occurrence: None)
  Receive Date: 20110512
  Receipt Date: 20110126
  Transmission Date: 20111010
  Serious: No
  Sender: FDA-Public Use
  Company Number: US-NOVEN-11US001670

PATIENT
  Sex: Male
  Weight: 18.141 kg

DRUGS (2)
  1. MELATONIN [Concomitant]
     Indication: SLEEP DISORDER
     Dosage: 1.5MG, QHS
     Route: 048
  2. DAYTRANA [Suspect]
     Indication: ATTENTION DEFICIT/HYPERACTIVITY DISORDER
     Dosage: 20 MG, QD
     Route: 062
     Dates: start: 20110101

REACTIONS (3)
  - DISTURBANCE IN SOCIAL BEHAVIOUR [None]
  - INITIAL INSOMNIA [None]
  - DRUG EFFECT DELAYED [None]
